FAERS Safety Report 9269040 (Version 4)
Quarter: 2013Q3

REPORT INFORMATION
  Report Type: Spontaneous
  Country: US (occurrence: US)
  Receive Date: 20130503
  Receipt Date: 20130722
  Transmission Date: 20140515
  Serious: No
  Sender: FDA-Public Use
  Company Number: US-009507513-1305USA000632

PATIENT
  Age: 22 Year
  Sex: Female
  Weight: 89.8 kg

DRUGS (1)
  1. IMPLANON [Suspect]
     Indication: CONTRACEPTION
     Dosage: ^STANDARD DOSE^
     Route: 059
     Dates: start: 20120708, end: 20130426

REACTIONS (3)
  - Headache [Recovered/Resolved]
  - Device breakage [Recovered/Resolved]
  - Product quality issue [Unknown]
